FAERS Safety Report 4350462-3 (Version None)
Quarter: 2004Q2

REPORT INFORMATION
  Report Type: 
  Country: None (occurrence: None)
  Receive Date: 20040427
  Receipt Date: 20040415
  Transmission Date: 20050107
  Serious: Yes (Death, Hospitalization)
  Sender: FDA-Public Use
  Company Number: 04P-163-0251141-00

PATIENT
  Age: 72 Year
  Sex: Male

DRUGS (9)
  1. HUMIRA [Suspect]
     Indication: RHEUMATOID ARTHRITIS
     Dosage: 40 MG, 1 IN 2 WK, SUBCUTANEOUS
     Route: 058
     Dates: start: 20030101, end: 20040101
  2. PREDNISONE [Suspect]
     Dosage: 10 MG, 1 IN 1 D
  3. DIGOXIN [Concomitant]
  4. WARFARIN SODIUM [Concomitant]
  5. FUROSEMIDE [Concomitant]
  6. POTASSIUM CHLORIDE [Concomitant]
  7. DICYCLOMINE HCL [Concomitant]
  8. IRBESARTAN [Concomitant]
  9. ROFECOXIB [Concomitant]

REACTIONS (12)
  - ACUTE RESPIRATORY FAILURE [None]
  - CARDIAC FAILURE CONGESTIVE [None]
  - DUODENITIS [None]
  - GASTRITIS [None]
  - HYPERTENSION [None]
  - IMMUNOSUPPRESSION [None]
  - IMPLANT SITE INFECTION [None]
  - INFLAMMATION [None]
  - IRON DEFICIENCY ANAEMIA [None]
  - OSTEOMYELITIS [None]
  - PNEUMONIA STAPHYLOCOCCAL [None]
  - STAPHYLOCOCCAL INFECTION [None]
